FAERS Safety Report 17980983 (Version 1)
Quarter: 2020Q3

REPORT INFORMATION
  Report Type: Spontaneous
  Country: GB (occurrence: GB)
  Receive Date: 20200704
  Receipt Date: 20200704
  Transmission Date: 20201103
  Serious: Yes (Death, Other)
  Sender: FDA-Public Use
  Company Number: GB-TEVA-2020-GB-1794579

PATIENT
  Age: 66 Year
  Sex: Female

DRUGS (21)
  1. TOCILIZUMAB. [Suspect]
     Active Substance: TOCILIZUMAB
     Indication: IMMUNE EFFECTOR CELL-ASSOCIATED NEUROTOXICITY SYNDROME
  2. CIPROFLOXACIN. [Concomitant]
     Active Substance: CIPROFLOXACIN
     Indication: LYMPHOCYTE ADOPTIVE THERAPY
     Dosage: UNK
     Route: 065
     Dates: start: 20200103
  3. ACICLOVIR [Concomitant]
     Active Substance: ACYCLOVIR
     Indication: LYMPHOCYTE ADOPTIVE THERAPY
     Dosage: UNK
     Route: 065
     Dates: start: 20200103
  4. METHYLPREDNISOLONE. [Suspect]
     Active Substance: METHYLPREDNISOLONE
     Indication: IMMUNE EFFECTOR CELL-ASSOCIATED NEUROTOXICITY SYNDROME
     Dosage: UNK
     Route: 065
  5. ANAKINRA [Suspect]
     Active Substance: ANAKINRA
     Indication: IMMUNE EFFECTOR CELL-ASSOCIATED NEUROTOXICITY SYNDROME
     Dosage: UNK
     Route: 065
     Dates: start: 20200124
  6. PREDNISOLONE. [Concomitant]
     Active Substance: PREDNISOLONE
     Indication: MYASTHENIC SYNDROME
     Dosage: UNK
     Route: 065
  7. DEXAMETHASONE. [Suspect]
     Active Substance: DEXAMETHASONE
     Indication: IMMUNE EFFECTOR CELL-ASSOCIATED NEUROTOXICITY SYNDROME
     Dosage: UNK
     Route: 065
     Dates: start: 20200121
  8. TOCILIZUMAB. [Suspect]
     Active Substance: TOCILIZUMAB
     Indication: IMMUNE EFFECTOR CELL-ASSOCIATED NEUROTOXICITY SYNDROME
  9. SYLVANT [Suspect]
     Active Substance: SILTUXIMAB
     Dosage: 100 MILLIGRAM
     Route: 042
     Dates: start: 20200210
  10. METOCLOPRAMIDE. [Concomitant]
     Active Substance: METOCLOPRAMIDE
     Indication: LYMPHOCYTE ADOPTIVE THERAPY
     Dosage: UNK
     Route: 065
     Dates: start: 20200103
  11. LEVETIRACETAM. [Concomitant]
     Active Substance: LEVETIRACETAM
     Indication: LYMPHOCYTE ADOPTIVE THERAPY
     Dosage: UNK
     Route: 065
     Dates: start: 20200108
  12. METHYLPREDNISOLONE. [Suspect]
     Active Substance: METHYLPREDNISOLONE
     Indication: IMMUNE EFFECTOR CELL-ASSOCIATED NEUROTOXICITY SYNDROME
  13. ANAKINRA [Suspect]
     Active Substance: ANAKINRA
     Indication: IMMUNE EFFECTOR CELL-ASSOCIATED NEUROTOXICITY SYNDROME
  14. ZARZIO [Concomitant]
     Active Substance: FILGRASTIM
     Indication: LYMPHOCYTE ADOPTIVE THERAPY
     Dosage: UNK
     Route: 065
     Dates: start: 20200130
  15. DEXAMETHASONE. [Suspect]
     Active Substance: DEXAMETHASONE
     Indication: IMMUNE EFFECTOR CELL-ASSOCIATED NEUROTOXICITY SYNDROME
  16. TOCILIZUMAB. [Suspect]
     Active Substance: TOCILIZUMAB
     Indication: CYTOKINE RELEASE SYNDROME
     Dosage: 4 TIMES
     Route: 065
     Dates: start: 20200113, end: 20200120
  17. SYLVANT [Suspect]
     Active Substance: SILTUXIMAB
     Indication: CYTOKINE RELEASE SYNDROME
     Dosage: UNK, LYOPHILIZED POWDER
     Route: 042
     Dates: start: 20191230
  18. PREDNISOLONE. [Concomitant]
     Active Substance: PREDNISOLONE
     Indication: MYASTHENIC SYNDROME
     Dosage: 100MG
     Route: 065
     Dates: start: 20200210
  19. FLUCONAZOLE. [Concomitant]
     Active Substance: FLUCONAZOLE
     Indication: LYMPHOCYTE ADOPTIVE THERAPY
     Dosage: UNK
     Route: 065
     Dates: start: 20200106
  20. AZATHIOPRINE. [Concomitant]
     Active Substance: AZATHIOPRINE
     Indication: MYASTHENIC SYNDROME
     Dosage: UNK
     Route: 065
  21. ONDANSETRON [Concomitant]
     Active Substance: ONDANSETRON
     Indication: LYMPHOCYTE ADOPTIVE THERAPY
     Dosage: UNK
     Route: 065
     Dates: start: 20200103

REACTIONS (6)
  - Cytokine release syndrome [Unknown]
  - Disease progression [Fatal]
  - Product use in unapproved indication [Unknown]
  - Off label use [Unknown]
  - Toxicity to various agents [Fatal]
  - Immune effector cell-associated neurotoxicity syndrome [Unknown]

NARRATIVE: CASE EVENT DATE: 202003
